FAERS Safety Report 24281362 (Version 2)
Quarter: 2024Q3

REPORT INFORMATION
  Report Type: Spontaneous
  Country: US (occurrence: US)
  Receive Date: 20240904
  Receipt Date: 20240924
  Transmission Date: 20241017
  Serious: Yes (Other)
  Sender: HIKMA
  Company Number: US-HIKMA PHARMACEUTICALS USA INC.-US-H14001-24-08182

PATIENT
  Sex: Female

DRUGS (2)
  1. CEVIMELINE HYDROCHLORIDE [Suspect]
     Active Substance: CEVIMELINE HYDROCHLORIDE
     Indication: Dry eye
     Dosage: 1 DOSAGE FORM
     Route: 048
  2. CEVIMELINE HYDROCHLORIDE [Suspect]
     Active Substance: CEVIMELINE HYDROCHLORIDE
     Indication: Dry mouth

REACTIONS (6)
  - Papilloedema [Recovering/Resolving]
  - Photophobia [Recovering/Resolving]
  - Off label use [Unknown]
  - Dry eye [Unknown]
  - Dry mouth [Unknown]
  - Condition aggravated [Unknown]
